FAERS Safety Report 5715434-2 (Version None)
Quarter: 2008Q2

REPORT INFORMATION
  Report Type: 
  Country: None (occurrence: None)
  Receive Date: 20080423
  Receipt Date: 20080411
  Transmission Date: 20081010
  Serious: Yes (Other)
  Sender: FDA-Public Use
  Company Number: FR-PFIZER INC-2008033997

PATIENT
  Age: 50 Year
  Sex: Male

DRUGS (1)
  1. CHAMPIX [Suspect]
     Indication: SMOKING CESSATION THERAPY

REACTIONS (4)
  - COUGH [None]
  - ORAL FUNGAL INFECTION [None]
  - OROPHARYNGITIS FUNGAL [None]
  - PYREXIA [None]
